FAERS Safety Report 23275695 (Version 1)
Quarter: 2023Q4

REPORT INFORMATION
  Report Type: Spontaneous
  Country: DE (occurrence: DE)
  Receive Date: 20231208
  Receipt Date: 20231208
  Transmission Date: 20240110
  Serious: Yes (Congenital Anomaly, Other)
  Sender: FDA-Public Use
  Company Number: None

PATIENT
  Age: 1 Day
  Sex: Male
  Weight: 3 kg

DRUGS (7)
  1. DULOXETINE [Suspect]
     Active Substance: DULOXETINE
     Indication: Product used for unknown indication
     Dosage: MOTHER^S DOSE: 90 [MG/D ] FROM 14-FEB-2022 TO 15-APR-2022 FOR 63 DAYS
     Route: 064
  2. PIPAMPERONE [Suspect]
     Active Substance: PIPAMPERONE
     Indication: Product used for unknown indication
     Dosage: MOTHER^S DOSE: 20 [MG/D ]
     Route: 064
  3. ZOPICLONE [Suspect]
     Active Substance: ZOPICLONE
     Indication: Product used for unknown indication
     Dosage: MOTHER DOSE: 7.5 [MG/D ]/ 7.5 MG/D AS NEEDED
     Route: 064
  4. DICLOFENAC [Concomitant]
     Active Substance: DICLOFENAC
     Indication: Product used for unknown indication
     Dosage: GESTATIONAL WEEK 2/3, FOR FEW DAYS
     Route: 064
  5. INSULIN NOS [Concomitant]
     Active Substance: INSULIN NOS
     Indication: Product used for unknown indication
     Dosage: UNKNOWN
     Route: 065
  6. ortoton [Concomitant]
     Indication: Product used for unknown indication
     Dosage: GESTATIONAL WEEK 2/3, FOR FEW DAYS
     Route: 064
  7. VENLAFAXINE [Concomitant]
     Active Substance: VENLAFAXINE HYDROCHLORIDE
     Indication: Product used for unknown indication
     Dosage: 75 MG/D FROM FOR 219 DAYS, REDUCED TO 37.5 MG/D TWO WEEKS BEFORE BIRTH
     Route: 064

REACTIONS (2)
  - Foetal exposure during pregnancy [Unknown]
  - Anterior chamber cleavage syndrome [Not Recovered/Not Resolved]

NARRATIVE: CASE EVENT DATE: 20221101
